FAERS Safety Report 6156499-6 (Version None)
Quarter: 2009Q2

REPORT INFORMATION
  Report Type: 
  Country: None (occurrence: None)
  Receive Date: 20090416
  Receipt Date: 20090324
  Transmission Date: 20091009
  Serious: Yes (Life-Threatening, Other)
  Sender: FDA-Public Use
  Company Number: CA-PFIZER INC-2009165977

PATIENT

DRUGS (17)
  1. ZELDOX [Suspect]
     Route: 048
  2. ALTACE [Concomitant]
     Dosage: UNK
  3. VITAMIN D [Concomitant]
     Dosage: UNK
  4. SYNTHROID [Concomitant]
     Dosage: UNK
  5. RABEPRAZOLE [Concomitant]
     Dosage: UNK
  6. CYCLOBENZAPRINE [Concomitant]
     Dosage: UNK
  7. TYLENOL [Concomitant]
     Dosage: UNK
  8. DOMPERIDONE [Concomitant]
     Dosage: UNK
  9. CODEINE [Concomitant]
     Dosage: UNK
  10. HALDOL [Concomitant]
     Dosage: UNK
  11. DYAZIDE [Concomitant]
     Dosage: UNK
  12. EFFEXOR [Concomitant]
     Dosage: UNK
  13. REMERON [Concomitant]
     Dosage: UNK
  14. WELLBUTRIN [Concomitant]
     Dosage: UNK
  15. CALCIUM [Concomitant]
     Dosage: UNK
  16. BENZTROPEINE [Concomitant]
     Dosage: UNK
  17. TRAZODONE HYDROCHLORIDE [Concomitant]
     Dosage: UNK

REACTIONS (1)
  - CARDIAC ARREST [None]
